FAERS Safety Report 11287687 (Version 1)
Quarter: 2015Q3

REPORT INFORMATION
  Report Type: Spontaneous
  Country: US (occurrence: None)
  Receive Date: 20150720
  Receipt Date: 20150720
  Transmission Date: 20151125
  Serious: Yes (Hospitalization)
  Sender: FDA-Public Use
  Company Number: None

PATIENT
  Age: 73 Year
  Sex: Male
  Weight: 76.1 kg

DRUGS (1)
  1. GLIPIZIDE. [Suspect]
     Active Substance: GLIPIZIDE
     Indication: DIABETES MELLITUS
     Dosage: MG BID PO
     Route: 048
     Dates: start: 20080216, end: 20150418

REACTIONS (4)
  - Diarrhoea [None]
  - Presyncope [None]
  - Hypoglycaemia [None]
  - Fall [None]

NARRATIVE: CASE EVENT DATE: 20150418
